FAERS Safety Report 14913830 (Version 1)
Quarter: 2018Q2

REPORT INFORMATION
  Report Type: Spontaneous
  Country: ZA (occurrence: ZA)
  Receive Date: 20180518
  Receipt Date: 20180518
  Transmission Date: 20180711
  Serious: Yes (Hospitalization)
  Sender: FDA-Public Use
  Company Number: ZA-PFIZER INC-2018199629

PATIENT
  Age: 56 Year
  Sex: Female

DRUGS (13)
  1. ESPIRIDE [Suspect]
     Active Substance: SULPIRIDE
     Dosage: 50 MG, UNK
  2. EPILIM [Suspect]
     Active Substance: VALPROATE SODIUM
     Dosage: 800 MG, UNK
  3. EPITEC [Suspect]
     Active Substance: LAMOTRIGINE
     Dosage: 300 MG, UNK
  4. CAMCOLIT [Suspect]
     Active Substance: LITHIUM CARBONATE
     Dosage: 250 MG, UNK
  5. SERDEP (SERTRALINE HYDROCHLORIDE) [Suspect]
     Active Substance: SERTRALINE HYDROCHLORIDE
     Dosage: 50 MG, UNK
  6. DOPAQUEL [Suspect]
     Active Substance: QUETIAPINE
     Dosage: 300 MG, UNK
  7. GLUCOPHAGE [Suspect]
     Active Substance: METFORMIN HYDROCHLORIDE
     Dosage: 1000 MG, UNK
  8. RIVOTRIL [Suspect]
     Active Substance: CLONAZEPAM
     Dosage: 0.5 MG, UNK
  9. WELLBUTRIN XL [Suspect]
     Active Substance: BUPROPION HYDROCHLORIDE
     Dosage: 150 MG, UNK
  10. NAVALPRO [Suspect]
     Active Substance: VALPROIC ACID
     Dosage: 300 MG, UNK
  11. METHOTREXATE. [Suspect]
     Active Substance: METHOTREXATE
     Dosage: 2.5 MG, UNK
  12. INDERAL [Suspect]
     Active Substance: PROPRANOLOL HYDROCHLORIDE
     Dosage: 10 MG, UNK
  13. TRAZODONE [Suspect]
     Active Substance: TRAZODONE HYDROCHLORIDE
     Dosage: 100 MG, UNK

REACTIONS (1)
  - Obstruction [Unknown]
